FAERS Safety Report 6682302-1 (Version None)
Quarter: 2010Q2

REPORT INFORMATION
  Report Type: 
  Country: None (occurrence: None)
  Receive Date: 20100414
  Receipt Date: 20100414
  Transmission Date: 20101027
  Serious: Yes (Disabling)
  Sender: FDA-Public Use
  Company Number: None

PATIENT
  Sex: Female
  Weight: 56.6996 kg

DRUGS (1)
  1. NITROFURANTOIN [Suspect]
     Indication: CYSTITIS
     Dosage: 1 CAPSULE BY MOUTH EVERYDAY 1 X DAILY
     Dates: start: 20090326, end: 20100215

REACTIONS (3)
  - HYPOAESTHESIA [None]
  - NERVE COMPRESSION [None]
  - PARAESTHESIA [None]
